FAERS Safety Report 17786898 (Version 2)
Quarter: 2020Q2

REPORT INFORMATION
  Report Type: Spontaneous
  Country: US (occurrence: US)
  Receive Date: 20200514
  Receipt Date: 20200624
  Transmission Date: 20200714
  Serious: No
  Sender: FDA-Public Use
  Company Number: US-009507513-2005USA001186

PATIENT
  Age: 30 Year
  Sex: Female
  Weight: 59.87 kg

DRUGS (3)
  1. NUVARING [Suspect]
     Active Substance: ETHINYL ESTRADIOL\ETONOGESTREL
     Indication: CONTRACEPTION
     Dosage: 1 RING EVERY 4 WEEKS; STRENGTH: 0.015/0.12 (UNIT UNSPECIFIED)
     Route: 067
     Dates: start: 2012
  2. ETONOGESTREL (+) ETHINYL ESTRADIOL [Suspect]
     Active Substance: ETHINYL ESTRADIOL\ETONOGESTREL
     Indication: CONTRACEPTION
     Dosage: 1 RING EVERY FOUR WEEKS
     Route: 067
     Dates: start: 202003, end: 20200413
  3. OTEZLA [Concomitant]
     Active Substance: APREMILAST
     Dosage: UNK

REACTIONS (9)
  - Mood altered [Recovering/Resolving]
  - Vulvovaginal discomfort [Recovering/Resolving]
  - Acne [Recovering/Resolving]
  - Vaginal discharge [Recovering/Resolving]
  - Urinary tract infection [Recovering/Resolving]
  - Dysmenorrhoea [Recovering/Resolving]
  - Headache [Recovering/Resolving]
  - Nausea [Recovering/Resolving]
  - Product dose omission [Unknown]

NARRATIVE: CASE EVENT DATE: 202003
